FAERS Safety Report 8596532-5 (Version None)
Quarter: 2012Q3

REPORT INFORMATION
  Report Type: 
  Country: None (occurrence: None)
  Receive Date: 20120806
  Receipt Date: 20120806
  Transmission Date: 20120928
  Serious: Yes (Life-Threatening, Hospitalization)
  Sender: FDA-Public Use
  Company Number: None

PATIENT
  Sex: Female
  Weight: 66 kg

DRUGS (2)
  1. METRONIDAZOLE [Suspect]
     Indication: DIVERTICULITIS
     Dosage: 500 MG Q6HRS PO
     Route: 048
  2. LEVOFLOXACIN [Suspect]
     Indication: DIVERTICULITIS
     Dosage: 500 MG DAILY PO
     Route: 048

REACTIONS (6)
  - PRURITUS [None]
  - FAECES PALE [None]
  - DECREASED APPETITE [None]
  - JAUNDICE [None]
  - DRUG-INDUCED LIVER INJURY [None]
  - CHOLESTASIS [None]
